FAERS Safety Report 15690723 (Version 1)
Quarter: 2018Q4

REPORT INFORMATION
  Report Type: Report from Study
  Country: US (occurrence: US)
  Receive Date: 20181205
  Receipt Date: 20181205
  Transmission Date: 20190205
  Serious: Yes (Hospitalization)
  Sender: FDA-Public Use
  Company Number: US-THERAVANCE-2017-000090

PATIENT
  Age: 63 Year
  Sex: Male

DRUGS (2)
  1. TELAVANCIN [Suspect]
     Active Substance: TELAVANCIN
     Dosage: 560 MG, QD
     Route: 042
     Dates: start: 20170222, end: 20170322
  2. TELAVANCIN [Suspect]
     Active Substance: TELAVANCIN
     Indication: STAPHYLOCOCCAL BACTERAEMIA
     Dosage: 750 MG, QD
     Route: 042
     Dates: start: 20170211, end: 20170221

REACTIONS (3)
  - Arthritis bacterial [Recovered/Resolved]
  - Osteomyelitis [Recovered/Resolved]
  - Pseudomeningocele [Recovered/Resolved]

NARRATIVE: CASE EVENT DATE: 20170324
